FAERS Safety Report 11297760 (Version 1)
Quarter: 2015Q3

REPORT INFORMATION
  Report Type: Spontaneous
  Country: US (occurrence: US)
  Receive Date: 20150722
  Receipt Date: 20150722
  Transmission Date: 20151125
  Serious: No
  Sender: FDA-Public Use
  Company Number: US-ELI_LILLY_AND_COMPANY-US200910007642

PATIENT
  Sex: Female

DRUGS (3)
  1. HUMATROPE [Suspect]
     Active Substance: SOMATROPIN
     Dosage: 0.2 MG, UNK
  2. HUMATROPE [Suspect]
     Active Substance: SOMATROPIN
     Dosage: 0.5 MG, UNK
  3. HUMATROPE [Suspect]
     Active Substance: SOMATROPIN
     Dosage: 0.2 MG, UNK

REACTIONS (3)
  - Incorrect dose administered [Recovered/Resolved]
  - Fatigue [Unknown]
  - Peripheral swelling [Unknown]
